FAERS Safety Report 9041882 (Version 1)
Quarter: 2013Q1

REPORT INFORMATION
  Report Type: Report from Study
  Country: US (occurrence: US)
  Receive Date: 20130129
  Receipt Date: 20130129
  Transmission Date: 20140127
  Serious: No
  Sender: FDA-Public Use
  Company Number: US-ABBOTT-12P-163-0901963-00

PATIENT
  Age: 19 Year
  Sex: Male

DRUGS (4)
  1. HUMIRA 40 MG/0.8 ML PEN [Suspect]
     Indication: CROHN^S DISEASE
     Dates: start: 201112
  2. PRILOSEC [Concomitant]
     Indication: GASTRITIS
     Dosage: DAILY
  3. DOXYCYCLINE [Concomitant]
     Indication: ACNE
     Dosage: DAILY
  4. PREDNISONE [Concomitant]
     Indication: CROHN^S DISEASE
     Dates: end: 20120205

REACTIONS (1)
  - Oropharyngeal pain [Not Recovered/Not Resolved]
